FAERS Safety Report 5590372-7 (Version None)
Quarter: 2008Q1

REPORT INFORMATION
  Report Type: 
  Country: None (occurrence: None)
  Receive Date: 20080109
  Receipt Date: 20071231
  Transmission Date: 20080703
  Serious: Yes (Hospitalization)
  Sender: FDA-Public Use
  Company Number: 2005US000728

PATIENT
  Age: 68 Year
  Sex: Male

DRUGS (12)
  1. PROGRAF [Suspect]
     Indication: RENAL TRANSPLANT
     Dosage: 1.5 MG, BID, ORAL
     Route: 048
     Dates: start: 20050213
  2. MYCOPHENOLATE MOFETIL [Suspect]
     Indication: RENAL TRANSPLANT
     Dosage: 1000 MG, BID, ORAL
     Route: 048
     Dates: start: 20050213, end: 20050511
  3. PREDNISONE TAB [Suspect]
     Indication: RENAL TRANSPLANT
     Dosage: 10.00 MG, ORAL
     Route: 048
     Dates: start: 20050213
  4. NIFEDIPINE [Concomitant]
  5. NPH INSULIN                         (INSULIN INJECTION, ISOPHANE) [Concomitant]
  6. ZOSYN [Concomitant]
  7. COLACE                   (DOCUSATE SODIUM) [Concomitant]
  8. ZANTAC 150 [Concomitant]
  9. CARDURA [Concomitant]
  10. NYSTATIN [Concomitant]
  11. METOPROLOL TARTRATE [Concomitant]
  12. VALCYTE [Concomitant]

REACTIONS (6)
  - ABSCESS NECK [None]
  - ACID FAST BACILLI INFECTION [None]
  - INTESTINAL OBSTRUCTION [None]
  - OSTEOARTHRITIS [None]
  - PLEURAL EFFUSION [None]
  - TUBERCULOSIS [None]
